FAERS Safety Report 9029901 (Version 1)
Quarter: 2013Q1

REPORT INFORMATION
  Report Type: Spontaneous
  Country: US (occurrence: US)
  Receive Date: 20130124
  Receipt Date: 20130124
  Transmission Date: 20140127
  Serious: Yes (Hospitalization, Other)
  Sender: FDA-Public Use
  Company Number: US-ELI_LILLY_AND_COMPANY-US201301005194

PATIENT
  Sex: Male

DRUGS (5)
  1. HUMALOG 25% LISPRO, 75% NPL [Suspect]
     Indication: DIABETES MELLITUS
     Dosage: UNK, PRN
     Dates: start: 2004, end: 201206
  2. HUMULIN NPH [Suspect]
     Indication: DIABETES MELLITUS
     Dosage: UNK UNK, UNKNOWN
     Dates: start: 201206
  3. HUMULIN NPH [Suspect]
     Dosage: UNK
  4. LEVEMIR [Concomitant]
  5. NOVOLOG [Concomitant]

REACTIONS (3)
  - Gastric cancer [Unknown]
  - Metastases to gastrointestinal tract [Unknown]
  - Asthenia [Unknown]
